FAERS Safety Report 10179976 (Version 1)
Quarter: 2014Q2

REPORT INFORMATION
  Report Type: Spontaneous
  Country: US (occurrence: US)
  Receive Date: 20140519
  Receipt Date: 20140519
  Transmission Date: 20141212
  Serious: No
  Sender: FDA-Public Use
  Company Number: US-BRISTOL-MYERS SQUIBB COMPANY-19397348

PATIENT
  Age: 32 Year
  Sex: Male
  Weight: 65.76 kg

DRUGS (1)
  1. BARACLUDE [Suspect]
     Indication: HEPATITIS B

REACTIONS (6)
  - Constipation [Unknown]
  - Peripheral coldness [Unknown]
  - Headache [Unknown]
  - Dyspepsia [Unknown]
  - Sensation of foreign body [Unknown]
  - Abdominal pain [Unknown]
